FAERS Safety Report 4725025-8 (Version None)
Quarter: 2005Q3

REPORT INFORMATION
  Report Type: 
  Country: None (occurrence: None)
  Receive Date: 20050722
  Receipt Date: 20050711
  Transmission Date: 20060218
  Serious: Yes (Hospitalization, Other)
  Sender: FDA-Public Use
  Company Number: 2005100514

PATIENT
  Age: 79 Year
  Sex: Female
  Weight: 85.7298 kg

DRUGS (5)
  1. CELEBREX [Suspect]
     Indication: ARTHRITIS
     Dosage: (DAILY)
  2. ENALAPRIL MALEATE [Concomitant]
  3. ISRADIPINE [Concomitant]
  4. CARVEDILOL [Concomitant]
  5. RELAFEN [Concomitant]

REACTIONS (5)
  - CARDIAC DISORDER [None]
  - DIABETES MELLITUS [None]
  - DRUG INEFFECTIVE [None]
  - PNEUMONIA [None]
  - WEIGHT DECREASED [None]
